FAERS Safety Report 18354380 (Version 1)
Quarter: 2020Q4

REPORT INFORMATION
  Report Type: Spontaneous
  Country: US (occurrence: US)
  Receive Date: 20201006
  Receipt Date: 20201006
  Transmission Date: 20210114
  Serious: Yes (Hospitalization)
  Sender: FDA-Public Use
  Company Number: None

PATIENT
  Age: 51 Year
  Sex: Female

DRUGS (20)
  1. ATENOLOL. [Concomitant]
     Active Substance: ATENOLOL
  2. BIOTIN [Concomitant]
     Active Substance: BIOTIN
  3. METFORMIN [Concomitant]
     Active Substance: METFORMIN HYDROCHLORIDE
  4. CHOLESTYRIAMI [Concomitant]
  5. EXCEDRIN [Concomitant]
     Active Substance: ACETAMINOPHEN\ASPIRIN\CAFFEINE
  6. GABAPENTIN. [Concomitant]
     Active Substance: GABAPENTIN
  7. VICTOZA [Concomitant]
     Active Substance: LIRAGLUTIDE
  8. VITAMIN D3 [Concomitant]
     Active Substance: CHOLECALCIFEROL
  9. BACLOFEN. [Concomitant]
     Active Substance: BACLOFEN
  10. LOVASTATIN. [Concomitant]
     Active Substance: LOVASTATIN
  11. VITAMIN B12 [Concomitant]
     Active Substance: CYANOCOBALAMIN
  12. CYMBALTA [Concomitant]
     Active Substance: DULOXETINE HYDROCHLORIDE
  13. DIOVAN [Concomitant]
     Active Substance: VALSARTAN
  14. MULTI-VITAMIN [Concomitant]
     Active Substance: .ALPHA.-TOCOPHEROL ACETATE, DL-\ASCORBIC ACID\CYANOCOBALAMIN\FLUORIDE ION\FOLIC ACID\NIACIN\PYRIDOXINE\RIBOFLAVIN\THIAMINE\VITAMIN A\VITAMIN D
  15. MYRBETRIQ [Concomitant]
     Active Substance: MIRABEGRON
  16. VICODIN [Concomitant]
     Active Substance: ACETAMINOPHEN\HYDROCODONE BITARTRATE
  17. DULOXETINE. [Concomitant]
     Active Substance: DULOXETINE
  18. DALFAMPRIDINE 10 MG ER TAB [Suspect]
     Active Substance: DALFAMPRIDINE
     Indication: MULTIPLE SCLEROSIS
     Route: 048
     Dates: start: 20200325
  19. MODAFINIL. [Concomitant]
     Active Substance: MODAFINIL
  20. SERTALINE [Concomitant]
     Active Substance: SERTRALINE HYDROCHLORIDE

REACTIONS (3)
  - Gait disturbance [None]
  - Pain [None]
  - Loss of personal independence in daily activities [None]

NARRATIVE: CASE EVENT DATE: 20200401
